FAERS Safety Report 17315518 (Version 1)
Quarter: 2020Q1

REPORT INFORMATION
  Report Type: Spontaneous
  Country: IT (occurrence: IT)
  Receive Date: 20200124
  Receipt Date: 20200124
  Transmission Date: 20200409
  Serious: Yes (Disabling)
  Sender: FDA-Public Use
  Company Number: IT-MYLANLABS-2020M1006906

PATIENT
  Age: 20 Year
  Sex: Male
  Weight: 80 kg

DRUGS (1)
  1. FINASTERIDE. [Suspect]
     Active Substance: FINASTERIDE
     Indication: ANDROGENETIC ALOPECIA
     Dosage: 1 MILLIGRAM, QD
     Route: 065
     Dates: start: 20100410, end: 20101020

REACTIONS (1)
  - Sexual dysfunction [Recovering/Resolving]

NARRATIVE: CASE EVENT DATE: 20100810
